FAERS Safety Report 9369959 (Version 2)
Quarter: 2013Q3

REPORT INFORMATION
  Report Type: Spontaneous
  Country: FR (occurrence: FR)
  Receive Date: 20130626
  Receipt Date: 20130711
  Transmission Date: 20140515
  Serious: Yes (Other)
  Sender: FDA-Public Use
  Company Number: FR-NOVOPROD-381313

PATIENT
  Age: 60 Year
  Sex: Female
  Weight: 132 kg

DRUGS (4)
  1. VICTOZA [Suspect]
     Indication: TYPE 2 DIABETES MELLITUS
     Dosage: 1.2 MG, QD
     Route: 065
  2. METFORMINE [Concomitant]
     Indication: TYPE 2 DIABETES MELLITUS
     Dosage: UNKNOWN
     Route: 065
  3. COTAREG [Concomitant]
     Indication: HYPERTENSION
     Dosage: UNKNOWN
     Route: 065
  4. CRESTOR [Concomitant]
     Indication: DYSLIPIDAEMIA
     Dosage: UNKNOWN
     Route: 065

REACTIONS (1)
  - Medullary thyroid cancer [Not Recovered/Not Resolved]
